FAERS Safety Report 23149078 (Version 1)
Quarter: 2023Q4

REPORT INFORMATION
  Report Type: Spontaneous
  Country: US (occurrence: US)
  Receive Date: 20231106
  Receipt Date: 20231106
  Transmission Date: 20240110
  Serious: No
  Sender: FDA-Public Use
  Company Number: US-BAYER-2023A156002

PATIENT
  Sex: Male

DRUGS (1)
  1. MIRALAX [Suspect]
     Active Substance: POLYETHYLENE GLYCOL 3350
     Dosage: 2 OR 3 DOSAGE OF 17 GRAMS MIX IN GLASS OF WATER
     Route: 048

REACTIONS (2)
  - Nausea [None]
  - Product preparation issue [Not Recovered/Not Resolved]
